FAERS Safety Report 13423379 (Version 1)
Quarter: 2017Q2

REPORT INFORMATION
  Report Type: Spontaneous
  Country: US (occurrence: US)
  Receive Date: 20170410
  Receipt Date: 20170410
  Transmission Date: 20170830
  Serious: Yes (Hospitalization)
  Sender: FDA-Public Use
  Company Number: None

PATIENT
  Age: 67 Year
  Sex: Male
  Weight: 106.59 kg

DRUGS (2)
  1. PROPRANOLOL [Suspect]
     Active Substance: PROPRANOLOL HYDROCHLORIDE
     Indication: TREMOR
     Route: 048
     Dates: start: 20170326, end: 20170403
  2. AMLODIPINE [Suspect]
     Active Substance: AMLODIPINE BESYLATE
     Route: 048
     Dates: start: 20130524, end: 20170403

REACTIONS (10)
  - Hypotension [None]
  - Acute lymphocytic leukaemia [None]
  - Performance status decreased [None]
  - Bacteraemia [None]
  - Neutropenia [None]
  - Sepsis [None]
  - Cellulitis [None]
  - Urinary tract infection [None]
  - Hypophagia [None]
  - Hypernatraemia [None]

NARRATIVE: CASE EVENT DATE: 20170403
